FAERS Safety Report 21371641 (Version 1)
Quarter: 2022Q3

REPORT INFORMATION
  Report Type: Spontaneous
  Country: US (occurrence: US)
  Receive Date: 20220923
  Receipt Date: 20220923
  Transmission Date: 20221026
  Serious: Yes (Other)
  Sender: FDA-Public Use
  Company Number: US-OTSUKA-2022_045816

PATIENT
  Age: 68 Year
  Sex: Male

DRUGS (8)
  1. BUSULFAN [Suspect]
     Active Substance: BUSULFAN
     Indication: T-cell lymphoma
     Dosage: 0.8 MG/KG, QD (ON DAYS ?6, ?5, ?4, ?3)
     Route: 042
  2. BUSULFAN [Suspect]
     Active Substance: BUSULFAN
     Indication: Bone marrow conditioning regimen
  3. TACROLIMUS [Suspect]
     Active Substance: TACROLIMUS
     Indication: T-cell lymphoma
     Dosage: 0.05 MG/KG, QD (5-10NG/ML)
     Route: 048
  4. TACROLIMUS [Suspect]
     Active Substance: TACROLIMUS
     Indication: Bone marrow conditioning regimen
  5. FLUDARABINE [Suspect]
     Active Substance: FLUDARABINE PHOSPHATE
     Indication: T-cell lymphoma
     Dosage: 30 MG/M2, QD (ON DAYS ?6, ?5, ?4, ?3)
     Route: 065
  6. FLUDARABINE [Suspect]
     Active Substance: FLUDARABINE PHOSPHATE
     Indication: Bone marrow conditioning regimen
  7. SIROLIMUS [Suspect]
     Active Substance: SIROLIMUS
     Indication: Graft versus host disease
     Dosage: 12 MG
     Route: 048
  8. SIROLIMUS [Suspect]
     Active Substance: SIROLIMUS
     Dosage: 4 MG, QD (SINGLE DOSE)
     Route: 048

REACTIONS (2)
  - Squamous cell carcinoma of the oral cavity [Unknown]
  - Product use in unapproved indication [Unknown]
